FAERS Safety Report 7514722-7 (Version None)
Quarter: 2011Q2

REPORT INFORMATION
  Report Type: 
  Country: None (occurrence: None)
  Receive Date: 20110520
  Receipt Date: 20110505
  Transmission Date: 20111010
  Serious: Yes (Hospitalization, Disabling, Other)
  Sender: FDA-Public Use
  Company Number: 2010005280

PATIENT
  Age: 54 Year
  Sex: Female
  Weight: 53.52 kg

DRUGS (12)
  1. SORAFENIB (TABLET) [Suspect]
     Indication: HEPATIC NEOPLASM MALIGNANT
     Dosage: 200 MG BID, ORAL
     Route: 048
     Dates: start: 20101103, end: 20101118
  2. ALPRAZOLAM [Concomitant]
  3. PROMETHAZINE [Concomitant]
  4. TEMAZEPAM [Concomitant]
  5. FENTANYL [Concomitant]
  6. CALCIUM CARBONATE [Concomitant]
  7. RESTASIS [Concomitant]
  8. LACTULOSE [Concomitant]
  9. ERLOTINIB/PLACEBO (ERLOTINIB) (TABLET) (ERLOTINIB) [Suspect]
     Indication: HEPATIC NEOPLASM MALIGNANT
     Dosage: 150 MG QD, ORAL
     Route: 048
     Dates: start: 20101103, end: 20101118
  10. LANSOPRAZOLE [Concomitant]
  11. HYDROMORPHONE HCL [Concomitant]
  12. VITAMIN D [Concomitant]

REACTIONS (5)
  - HYPOPHAGIA [None]
  - URINE OUTPUT DECREASED [None]
  - STEVENS-JOHNSON SYNDROME [None]
  - RASH [None]
  - PALMAR-PLANTAR ERYTHRODYSAESTHESIA SYNDROME [None]
